FAERS Safety Report 7597048-5 (Version None)
Quarter: 2011Q3

REPORT INFORMATION
  Report Type: 
  Country: None (occurrence: None)
  Receive Date: 20110708
  Receipt Date: 20110706
  Transmission Date: 20111222
  Serious: Yes (Life-Threatening)
  Sender: FDA-Public Use
  Company Number: FR-PFIZER INC-2011150682

PATIENT
  Age: 58 Year
  Sex: Female

DRUGS (3)
  1. SYNACTHENE [Suspect]
     Indication: SCIATICA
     Dosage: UNK
     Route: 030
     Dates: start: 20110523, end: 20110525
  2. CRESTOR [Concomitant]
     Dosage: 10 MG, UNK
  3. ARTHROTEC [Suspect]
     Indication: SCIATICA
     Dosage: UNK
     Route: 048
     Dates: end: 20110525

REACTIONS (5)
  - HAEMOTHORAX [None]
  - HYPOXIA [None]
  - ADRENAL HAEMORRHAGE [None]
  - RETROPERITONEAL HAEMATOMA [None]
  - HYPOTENSION [None]
